FAERS Safety Report 24417653 (Version 1)
Quarter: 2024Q4

REPORT INFORMATION
  Report Type: Report from Study
  Country: US (occurrence: US)
  Receive Date: 20241009
  Receipt Date: 20241009
  Transmission Date: 20250114
  Serious: Yes (Hospitalization)
  Sender: TAIHO ONCOLOGY INC
  Company Number: US-OTSUKA-2024_003044

PATIENT
  Age: 76 Year
  Sex: Female

DRUGS (1)
  1. INQOVI [Suspect]
     Active Substance: CEDAZURIDINE\DECITABINE
     Indication: Myelodysplastic syndrome
     Dosage: 1 DF (35 MG DECITABINE AND 100 MG CEDAZURIDINE), QOD (FOR 3 DAYS) OF EVERY 28 DAYS CYCLE
     Route: 048
     Dates: start: 202401

REACTIONS (4)
  - Transfusion [Unknown]
  - Decreased immune responsiveness [Recovering/Resolving]
  - Bacterial infection [Recovering/Resolving]
  - Inappropriate schedule of product administration [Unknown]

NARRATIVE: CASE EVENT DATE: 20240101
